FAERS Safety Report 4713464-0 (Version None)
Quarter: 2005Q3

REPORT INFORMATION
  Report Type: 
  Country: None (occurrence: None)
  Receive Date: 20050707
  Receipt Date: 20050620
  Transmission Date: 20060218
  Serious: Yes (Hospitalization)
  Sender: FDA-Public Use
  Company Number: 2005BH000421

PATIENT
  Age: 50 Year
  Sex: Female
  Weight: 72.5755 kg

DRUGS (6)
  1. TISSEEL VH KIT [Suspect]
     Indication: SKIN GRAFT
     Dosage: 0.28 ML; ONCE; TOP
     Route: 061
     Dates: start: 20050610, end: 20050610
  2. BACITRACIN [Concomitant]
  3. ORAMORPH SR [Concomitant]
  4. COLACE [Concomitant]
  5. SENNA [Concomitant]
  6. OXYCODONE [Concomitant]

REACTIONS (5)
  - DONOR SITE COMPLICATION [None]
  - ESCHAR [None]
  - POST PROCEDURAL CELLULITIS [None]
  - POSTOPERATIVE INFECTION [None]
  - POSTOPERATIVE WOUND COMPLICATION [None]
